FAERS Safety Report 13427270 (Version 1)
Quarter: 2017Q2

REPORT INFORMATION
  Report Type: Spontaneous
  Country: JP (occurrence: JP)
  Receive Date: 20170411
  Receipt Date: 20170411
  Transmission Date: 20170830
  Serious: Yes (Other)
  Sender: FDA-Public Use
  Company Number: PHHY2017JP029480

PATIENT
  Age: 71 Year
  Sex: Male

DRUGS (6)
  1. IMATINIB [Suspect]
     Active Substance: IMATINIB
     Dosage: UNK, DOSE REDUCED
     Route: 065
  2. IMMUNOGLOBULIN I.V [Concomitant]
     Active Substance: HUMAN IMMUNOGLOBULIN G
     Indication: MYOPATHY
     Dosage: UNK
     Route: 065
  3. IMATINIB [Suspect]
     Active Substance: IMATINIB
     Dosage: 200 MG, QD
     Route: 065
  4. IMATINIB [Suspect]
     Active Substance: IMATINIB
     Indication: CHRONIC MYELOID LEUKAEMIA
     Dosage: 400 MG, QD
     Route: 065
  5. PREDNISOLONE. [Concomitant]
     Active Substance: PREDNISOLONE
     Indication: MYOPATHY
     Dosage: UNK UNK, QD
     Route: 048
  6. METHOTREXATE. [Concomitant]
     Active Substance: METHOTREXATE
     Indication: IMMUNOSUPPRESSANT DRUG THERAPY
     Dosage: WEEKLY
     Route: 065

REACTIONS (5)
  - Drug intolerance [Unknown]
  - Blood creatine phosphokinase increased [Recovering/Resolving]
  - Muscle spasms [Recovered/Resolved]
  - Muscular weakness [Recovering/Resolving]
  - Immune-mediated necrotising myopathy [Recovering/Resolving]
